FAERS Safety Report 4492643-4 (Version None)
Quarter: 2004Q4

REPORT INFORMATION
  Report Type: 
  Country: None (occurrence: None)
  Receive Date: 20041029
  Receipt Date: 20041015
  Transmission Date: 20050328
  Serious: Yes (Death, Life-Threatening)
  Sender: FDA-Public Use
  Company Number: 2004239728TH

PATIENT
  Sex: Female

DRUGS (4)
  1. CELEBREX [Suspect]
     Indication: MYALGIA
     Dosage: 200 MG, BID, ORAL
     Route: 048
  2. CALCIUM [Concomitant]
  3. VITAMIN K2 (MENAQUINONE) [Concomitant]
  4. METHYCOBAL (MECOBALAMIN) [Concomitant]

REACTIONS (3)
  - CARDIAC ARREST [None]
  - DISCOMFORT [None]
  - MYOCARDIAL ISCHAEMIA [None]
